FAERS Safety Report 16811771 (Version 1)
Quarter: 2019Q3

REPORT INFORMATION
  Report Type: Spontaneous
  Country: DE (occurrence: DE)
  Receive Date: 20190916
  Receipt Date: 20190916
  Transmission Date: 20191005
  Serious: Yes (Other)
  Sender: FDA-Public Use
  Company Number: DE-MYLANLABS-2019M1085702

PATIENT
  Age: 60 Year
  Sex: Male

DRUGS (12)
  1. PIRACETAM [Concomitant]
     Active Substance: PIRACETAM
     Indication: POST-ANOXIC MYOCLONUS
     Dosage: MAXIMUM DAILY DOSE: 2400MG
     Route: 065
  2. CLONAZEPAM. [Suspect]
     Active Substance: CLONAZEPAM
     Indication: POST-ANOXIC MYOCLONUS
     Dosage: UP TO 1.5MG PER DAY
     Route: 065
  3. ZONISAMIDE. [Suspect]
     Active Substance: ZONISAMIDE
     Indication: POST-ANOXIC MYOCLONUS
     Dosage: UNK
     Route: 065
  4. PERAMPANEL [Suspect]
     Active Substance: PERAMPANEL
     Indication: POST-ANOXIC MYOCLONUS
     Dosage: MAXIMUM DAILY DOSE: 8MG
     Route: 065
  5. LEVETIRACETAM. [Concomitant]
     Active Substance: LEVETIRACETAM
     Indication: POST-ANOXIC MYOCLONUS
     Dosage: MAXIMUM DAILY DOSE OF 1500MG
     Route: 065
  6. LAMOTRIGINE. [Suspect]
     Active Substance: LAMOTRIGINE
     Indication: POST-ANOXIC MYOCLONUS
     Dosage: UNK
     Route: 065
  7. VALPROATE [Suspect]
     Active Substance: VALPROIC ACID
     Indication: POST-ANOXIC MYOCLONUS
     Dosage: UNK
     Route: 065
  8. GABAPENTIN. [Suspect]
     Active Substance: GABAPENTIN
     Indication: POST-ANOXIC MYOCLONUS
     Dosage: UNK
     Route: 065
  9. TOPIRAMATE. [Suspect]
     Active Substance: TOPIRAMATE
     Indication: POST-ANOXIC MYOCLONUS
     Dosage: UNK
     Route: 065
  10. ESLICARBAZEPINE [Concomitant]
     Active Substance: ESLICARBAZEPINE
     Indication: POST-ANOXIC MYOCLONUS
     Dosage: UNK
     Route: 065
  11. BRIVARACETAM [Suspect]
     Active Substance: BRIVARACETAM
     Indication: POST-ANOXIC MYOCLONUS
     Dosage: MAXIMUM DAILY DOSE OF 150MG
     Route: 065
  12. PREGABALIN. [Concomitant]
     Active Substance: PREGABALIN
     Indication: POST-ANOXIC MYOCLONUS
     Dosage: UNK
     Route: 065

REACTIONS (10)
  - Speech disorder [Unknown]
  - Salivary hypersecretion [Unknown]
  - Aggression [Unknown]
  - Dystonia [Unknown]
  - Nausea [Unknown]
  - Rash [Unknown]
  - Myoclonus [Unknown]
  - Vomiting [Unknown]
  - Parkinsonism [Unknown]
  - Fatigue [Unknown]
